FAERS Safety Report 13795499 (Version 2)
Quarter: 2018Q2

REPORT INFORMATION
  Report Type: Not Available
  Country: US (occurrence: US)
  Receive Date: 20170726
  Receipt Date: 20180418
  Transmission Date: 20180711
  Serious: No
  Sender: FDA-Public Use
  Company Number: US-NEUROCRINE BIOSCIENCES INC.-2017NBI00434

PATIENT
  Age: 65 Year
  Sex: Female

DRUGS (11)
  1. AMLODIPINE [Concomitant]
     Active Substance: AMLODIPINE BESYLATE
  2. HALOPERIDOL. [Concomitant]
     Active Substance: HALOPERIDOL
  3. VITAMIN C [Concomitant]
     Active Substance: ASCORBIC ACID
  4. PRESERVISION [Concomitant]
     Active Substance: MINERALS\VITAMINS
  5. CALCIUM + D [Concomitant]
     Active Substance: CALCIUM\VITAMIN D
  6. FENOFIBRATE. [Concomitant]
     Active Substance: FENOFIBRATE
  7. MULTIVITAMIN [Concomitant]
     Active Substance: VITAMINS
  8. STOOL SOFTNER [Concomitant]
  9. INGREZZA [Suspect]
     Active Substance: VALBENAZINE
     Indication: TARDIVE DYSKINESIA
     Route: 048
     Dates: start: 20170614
  10. SIMVASTATIN. [Concomitant]
     Active Substance: SIMVASTATIN
  11. IMIPRAMINE [Concomitant]
     Active Substance: IMIPRAMINE

REACTIONS (2)
  - Gout [Recovered/Resolved]
  - Drug ineffective [None]

NARRATIVE: CASE EVENT DATE: 20170628
